FAERS Safety Report 12504264 (Version 1)
Quarter: 2016Q2

REPORT INFORMATION
  Report Type: Spontaneous
  Country: US (occurrence: None)
  Receive Date: 20160627
  Receipt Date: 20160627
  Transmission Date: 20160815
  Serious: No
  Sender: FDA-Public Use
  Company Number: None

PATIENT
  Age: 68 Year
  Sex: Female

DRUGS (1)
  1. XALKORI [Suspect]
     Active Substance: CRIZOTINIB

REACTIONS (6)
  - Vomiting [None]
  - Constipation [None]
  - Nausea [None]
  - Miliaria [None]
  - Diarrhoea [None]
  - Hepatotoxicity [None]

NARRATIVE: CASE EVENT DATE: 20160330
